FAERS Safety Report 25097879 (Version 1)
Quarter: 2025Q1

REPORT INFORMATION
  Report Type: Spontaneous
  Country: US (occurrence: US)
  Receive Date: 20250320
  Receipt Date: 20250320
  Transmission Date: 20250409
  Serious: Yes (Other)
  Sender: ALKEM
  Company Number: US-ALKEM LABORATORIES LIMITED-US-ALKEM-2025-02548

PATIENT
  Age: 73 Year
  Sex: Female

DRUGS (5)
  1. COLCHICINE [Interacting]
     Active Substance: COLCHICINE
     Indication: Pericarditis
     Dosage: 0.6 MILLIGRAM, BID
     Route: 065
  2. COLCHICINE [Interacting]
     Active Substance: COLCHICINE
     Dosage: 0.3 MILLIGRAM, BID (LOW DOSE)
     Route: 065
  3. ERYTHROMYCIN [Interacting]
     Active Substance: ERYTHROMYCIN
     Indication: Product used for unknown indication
     Route: 065
  4. CYCLOSPORINE [Interacting]
     Active Substance: CYCLOSPORINE
     Indication: Product used for unknown indication
     Route: 065
  5. PREDNISONE [Concomitant]
     Active Substance: PREDNISONE
     Indication: Pericarditis
     Route: 065

REACTIONS (5)
  - Pancreatitis [Recovered/Resolved]
  - Toxicity to various agents [Recovered/Resolved]
  - Duodenitis [Recovered/Resolved]
  - Gastritis [Recovered/Resolved]
  - Drug interaction [Unknown]
